FAERS Safety Report 9600837 (Version 2)
Quarter: 2013Q4

REPORT INFORMATION
  Report Type: Spontaneous
  Country: US (occurrence: US)
  Receive Date: 20131004
  Receipt Date: 20131004
  Transmission Date: 20140711
  Serious: No
  Sender: FDA-Public Use
  Company Number: US-AMGEN-USASP2013033621

PATIENT
  Age: 40 Year
  Sex: Male
  Weight: 68.93 kg

DRUGS (8)
  1. ENBREL [Suspect]
     Indication: JUVENILE IDIOPATHIC ARTHRITIS
     Dosage: 50 MG, QWK
     Route: 058
     Dates: start: 20130409
  2. ARAVA [Concomitant]
     Dosage: 20 MG, QD
     Route: 048
  3. DIOVAN [Concomitant]
     Dosage: 320 MG, QD
     Route: 048
  4. TOPROL [Concomitant]
     Dosage: 25 MG, QD
     Route: 048
  5. NORVASC [Concomitant]
     Dosage: 10 MG, QD
     Route: 048
  6. PROPECIA [Concomitant]
     Dosage: 1 MG, QD
     Route: 048
  7. VITAMIN D                          /00318501/ [Concomitant]
     Dosage: 1000 UNIT, QD
     Route: 048
  8. CENTRUM                            /02217401/ [Concomitant]
     Dosage: 1 TABLET, QD
     Route: 048

REACTIONS (7)
  - Oropharyngeal pain [Not Recovered/Not Resolved]
  - Rhinorrhoea [Not Recovered/Not Resolved]
  - Lethargy [Not Recovered/Not Resolved]
  - Pain [Not Recovered/Not Resolved]
  - Upper-airway cough syndrome [Not Recovered/Not Resolved]
  - Arthralgia [Not Recovered/Not Resolved]
  - Nasopharyngitis [Not Recovered/Not Resolved]
